FAERS Safety Report 11409848 (Version 1)
Quarter: 2015Q3

REPORT INFORMATION
  Report Type: Spontaneous
  Country: US (occurrence: None)
  Receive Date: 20150820
  Receipt Date: 20150820
  Transmission Date: 20151125
  Serious: No
  Sender: FDA-Public Use
  Company Number: 2014-24223

PATIENT
  Sex: Male

DRUGS (1)
  1. TESTOSTERONE CYPIONATE (UNKNOWN) (TESTOSTERONE CYPIONATE) UNK [Suspect]
     Active Substance: TESTOSTERONE CYPIONATE
     Indication: PRODUCT USED FOR UNKNOWN INDICATION

REACTIONS (3)
  - Energy increased [None]
  - Blood testosterone abnormal [None]
  - Asthenia [None]
